FAERS Safety Report 5033492-8 (Version None)
Quarter: 2006Q2

REPORT INFORMATION
  Report Type: 
  Country: None (occurrence: None)
  Receive Date: 20060518
  Receipt Date: 20060217
  Transmission Date: 20061013
  Serious: Yes (Other)
  Sender: FDA-Public Use
  Company Number: 2006026021

PATIENT
  Age: 20 Year
  Sex: Female

DRUGS (2)
  1. DEPO-PROVERA [Suspect]
     Indication: ILL-DEFINED DISORDER
     Dosage: 150 MG (150 MG,SINGLE INJECTION),INTRAMUSCULAR
     Route: 030
     Dates: start: 20050923, end: 20050923
  2. DEPO-SUBQ PROVER 104 (MEDROXYPROGESTERONE ACETATE) [Suspect]
     Indication: ILL-DEFINED DISORDER
     Dosage: 104 MG (150 MG,SINGLE INJECTION),SUBCUTANEOUS
     Route: 058
     Dates: start: 20051216, end: 20051216

REACTIONS (1)
  - UNINTENDED PREGNANCY [None]
